FAERS Safety Report 5837761-0 (Version None)
Quarter: 2008Q3

REPORT INFORMATION
  Report Type: 
  Country: None (occurrence: None)
  Receive Date: 20080731
  Receipt Date: 20080611
  Transmission Date: 20090109
  Serious: No
  Sender: FDA-Public Use
  Company Number: US200806002760

PATIENT
  Age: 54 Year
  Sex: Male
  Weight: 158.7 kg

DRUGS (14)
  1. BYETTA [Suspect]
     Indication: INSULIN-REQUIRING TYPE 2 DIABETES MELLITUS
     Dosage: 5 UG, 2/D, SUBCUTANEOUS; 10 UG, 2/D, SUBCUTANEOUS
     Route: 058
     Dates: start: 20080301, end: 20080501
  2. BYETTA [Suspect]
     Indication: INSULIN-REQUIRING TYPE 2 DIABETES MELLITUS
     Dosage: 5 UG, 2/D, SUBCUTANEOUS; 10 UG, 2/D, SUBCUTANEOUS
     Route: 058
     Dates: start: 20080501
  3. EXENATIDE 5MCG PEN, DISPOSABLE DEVICE (EXENATIDE PEN (5MCG)) PEN,DISPO [Concomitant]
  4. HUMULIN N [Concomitant]
  5. HUMULIN R [Concomitant]
  6. ACTOS /USA/ (PIOGLITAZONE HYDROCHLORIDE) [Concomitant]
  7. METFORMIN HCL [Concomitant]
  8. LISINOPRIL /USA/ (LISINOPRIL) [Concomitant]
  9. LOPRESSOR [Concomitant]
  10. IMDUR [Concomitant]
  11. LASIX /USA/ (FUROSEMIDE) [Concomitant]
  12. ZAROXOLYN [Concomitant]
  13. ALDACTONE [Concomitant]
  14. THYROID TAB [Concomitant]

REACTIONS (5)
  - DECREASED APPETITE [None]
  - DIARRHOEA [None]
  - INCORRECT DOSE ADMINISTERED [None]
  - NAUSEA [None]
  - STOMACH DISCOMFORT [None]
